FAERS Safety Report 22342189 (Version 6)
Quarter: 2023Q4

REPORT INFORMATION
  Report Type: Report from Study
  Country: GB (occurrence: GB)
  Receive Date: 20230519
  Receipt Date: 20231227
  Transmission Date: 20240109
  Serious: Yes (Other)
  Sender: FDA-Public Use
  Company Number: GB-AMGEN-GBRNI2023084323

PATIENT
  Age: 70 Year
  Sex: Male
  Weight: 87.4 kg

DRUGS (10)
  1. BEVACIZUMAB [Suspect]
     Active Substance: BEVACIZUMAB
     Indication: Hepatocellular carcinoma
     Dosage: 1200 MILLIGRAM
     Route: 065
     Dates: start: 20220602
  2. ATEZOLIZUMAB [Suspect]
     Active Substance: ATEZOLIZUMAB
     Indication: Hepatocellular carcinoma
     Dosage: 1200 MILLIGRAM/ (INTRAVENOUS DRIP
     Route: 041
     Dates: start: 20220602
  3. AMLODIPINE [Concomitant]
     Active Substance: AMLODIPINE BESYLATE
     Dosage: 5 MILLIGRAM, QD
     Route: 065
     Dates: start: 20220321
  4. ATORVASTATIN [Concomitant]
     Active Substance: ATORVASTATIN
     Dosage: 20 MILLIGRAM, QD
     Route: 065
     Dates: start: 20200402
  5. BENZYDAMINE [Concomitant]
     Active Substance: BENZYDAMINE
     Dosage: 15 MILLILITER, QID, 0.15% 15ML
     Route: 065
     Dates: start: 20220613
  6. BISOPROLOL [Concomitant]
     Active Substance: BISOPROLOL\BISOPROLOL FUMARATE
     Dosage: 2.5 MILLIGRAM, QD
     Route: 065
     Dates: start: 20220321
  7. AMOXICILLIN\CLAVULANATE POTASSIUM [Concomitant]
     Active Substance: AMOXICILLIN\CLAVULANATE POTASSIUM
     Dosage: UNK, TID, 500MG + 125MG;
     Route: 065
     Dates: start: 20230308
  8. DALTEPARIN [Concomitant]
     Active Substance: DALTEPARIN
     Dosage: UNK, QD, 18,000UNITS(0.72 ML)
     Route: 065
     Dates: start: 20220324
  9. APIXABAN [Concomitant]
     Active Substance: APIXABAN
     Dosage: 20 MILLIGRAM, QD
     Route: 065
     Dates: start: 20200402
  10. APIXABAN [Concomitant]
     Active Substance: APIXABAN

REACTIONS (1)
  - Hypothyroidism [Not Recovered/Not Resolved]

NARRATIVE: CASE EVENT DATE: 20230418
